FAERS Safety Report 21071211 (Version 4)
Quarter: 2022Q4

REPORT INFORMATION
  Report Type: Spontaneous
  Country: US (occurrence: US)
  Receive Date: 20220712
  Receipt Date: 20221117
  Transmission Date: 20230113
  Serious: No
  Sender: FDA-Public Use
  Company Number: US-BRISTOL-MYERS SQUIBB COMPANY-2022-071906

PATIENT
  Age: 70 Year
  Sex: Female

DRUGS (2)
  1. REVLIMID [Suspect]
     Active Substance: LENALIDOMIDE
     Indication: Plasma cell myeloma
     Dosage: TAKE 1 CAPSULE BY MOUTH AT BEDTIME ON DAYS? 1-28 WITH NO BREAKS.
     Route: 048
     Dates: start: 20210701
  2. REVLIMID [Suspect]
     Active Substance: LENALIDOMIDE
     Dosage: TAKE 1 CAPSULE BY MOUTH AT BEDTIME ON DAYS 1-28 WITH NO BREAKS.
     Route: 048
     Dates: start: 20211101

REACTIONS (4)
  - Diarrhoea [Unknown]
  - Off label use [Unknown]
  - Taste disorder [Unknown]
  - Weight decreased [Unknown]
